FAERS Safety Report 7949735-4 (Version None)
Quarter: 2011Q4

REPORT INFORMATION
  Report Type: 
  Country: None (occurrence: None)
  Receive Date: 20111130
  Receipt Date: 20111124
  Transmission Date: 20120403
  Serious: Yes (Other)
  Sender: FDA-Public Use
  Company Number: JP-PFIZER INC-2011287880

PATIENT
  Age: 78 Year
  Sex: Male

DRUGS (8)
  1. SITAGLIPTIN PHOSPHATE [Concomitant]
     Dosage: UNK
  2. LYRICA [Suspect]
     Dosage: UNK
     Route: 048
  3. DABIGATRAN ETEXILATE [Concomitant]
     Dosage: UNK
  4. MENEST [Suspect]
     Dosage: UNK
  5. IRBESARTAN [Concomitant]
     Dosage: UNK
  6. ASPIRIN [Concomitant]
     Dosage: UNK
  7. LASIX [Concomitant]
     Dosage: UNK
  8. LANSOPRAZOLE [Concomitant]
     Dosage: UNK

REACTIONS (1)
  - MULTI-ORGAN FAILURE [None]
